FAERS Safety Report 8373744-7 (Version None)
Quarter: 2012Q2

REPORT INFORMATION
  Report Type: 
  Country: None (occurrence: None)
  Receive Date: 20120521
  Receipt Date: 20120516
  Transmission Date: 20120825
  Serious: No
  Sender: FDA-Public Use
  Company Number: US-PFIZER INC-2012119862

PATIENT
  Sex: Male

DRUGS (4)
  1. ATORVASTATIN CALCIUM [Suspect]
     Indication: BLOOD TRIGLYCERIDES INCREASED
  2. VALIUM [Concomitant]
     Indication: ANXIETY
     Dosage: 5 MG, UNK
  3. PROZAC [Concomitant]
     Dosage: 20 MG, UNK
  4. ATORVASTATIN CALCIUM [Suspect]
     Indication: BLOOD CHOLESTEROL INCREASED
     Dosage: 10 MG, UNK
     Dates: start: 20111201

REACTIONS (1)
  - HEPATIC ENZYME INCREASED [None]
